FAERS Safety Report 4995559-X (Version None)
Quarter: 2006Q2

REPORT INFORMATION
  Report Type: 
  Country: None (occurrence: None)
  Receive Date: 20060504
  Receipt Date: 20060425
  Transmission Date: 20061013
  Serious: Yes (Death)
  Sender: FDA-Public Use
  Company Number: 163-21880-06030918

PATIENT
  Age: 68 Year
  Sex: Male

DRUGS (17)
  1. REVLIMID [Suspect]
     Indication: MULTIPLE MYELOMA
     Dosage: 10 MG, QD 2 WEEKS ON, 1 WEEK OFF, ORAL
     Route: 048
     Dates: start: 20060320, end: 20060323
  2. ACYCLOVIR [Concomitant]
  3. BACTRIM [Concomitant]
  4. DIFLUCAN [Concomitant]
  5. ENALAPRIL MALEATE [Concomitant]
  6. FOLIC ACID [Concomitant]
  7. LASIX [Concomitant]
  8. METHADONE HCL [Concomitant]
  9. MORPHINE [Concomitant]
  10. OXYCODONE [Concomitant]
  11. VELCADE [Concomitant]
  12. OXYCONTIN [Concomitant]
  13. PAXIL [Concomitant]
  14. DECADRON SRC [Concomitant]
  15. PRILOSEC [Concomitant]
  16. RITALIN [Concomitant]
  17. ARANESP [Concomitant]

REACTIONS (1)
  - DISEASE PROGRESSION [None]
